FAERS Safety Report 7659308-9 (Version None)
Quarter: 2011Q3

REPORT INFORMATION
  Report Type: 
  Country: None (occurrence: None)
  Receive Date: 20110805
  Receipt Date: 20110728
  Transmission Date: 20111222
  Serious: Yes (Hospitalization)
  Sender: FDA-Public Use
  Company Number: GB-ROCHE-793462

PATIENT
  Sex: Male

DRUGS (4)
  1. EPIRUBICIN [Suspect]
     Dosage: LAST DOSE PRIOR TO SAE: 20 OCTOBER 2011
     Route: 042
     Dates: start: 20100908
  2. CISPLATIN [Suspect]
     Dosage: LAST DOSE PRIOR TO SAE: 01 MARCH 2011
     Route: 042
     Dates: start: 20100908
  3. BEVACIZUMAB [Suspect]
     Dosage: LAST DOSE PRIOR TO SAE: 20 OCTOBER 2010
     Route: 042
     Dates: start: 20100908
  4. CAPECITABINE [Suspect]
     Dosage: LAST DOSE PRIOR TO SAE: 01 MARCH 2011
     Route: 048
     Dates: start: 20100908

REACTIONS (1)
  - VIITH NERVE PARALYSIS [None]
